FAERS Safety Report 13332651 (Version 1)
Quarter: 2017Q1

REPORT INFORMATION
  Report Type: Spontaneous
  Country: US (occurrence: US)
  Receive Date: 20170314
  Receipt Date: 20170314
  Transmission Date: 20170428
  Serious: Yes (Other)
  Sender: FDA-Public Use
  Company Number: None

PATIENT
  Age: 73 Year
  Sex: Female
  Weight: 66.15 kg

DRUGS (10)
  1. METFORMIN HYDROCHLORIDE. [Concomitant]
     Active Substance: METFORMIN HYDROCHLORIDE
  2. VITAMIN B1 [Concomitant]
     Active Substance: THIAMINE HYDROCHLORIDE
  3. SUPER CITRIMAX [Concomitant]
  4. BIOTIN [Concomitant]
     Active Substance: BIOTIN
  5. VITAMIN D [Concomitant]
     Active Substance: CHOLECALCIFEROL
  6. AMITRIPTYLINE [Concomitant]
     Active Substance: AMITRIPTYLINE
  7. LEVOXYL [Concomitant]
     Active Substance: LEVOTHYROXINE SODIUM
  8. SIMVASTATIN. [Concomitant]
     Active Substance: SIMVASTATIN
  9. INJECTION W/EPINEPHRINE [Suspect]
     Active Substance: EPINEPHRINE
     Indication: DENTAL LOCAL ANAESTHESIA
     Dosage: OTHER ROUTE:DENTAL INJECTION?
     Dates: start: 20170309
  10. PRILOSEC [Concomitant]
     Active Substance: OMEPRAZOLE MAGNESIUM

REACTIONS (4)
  - Back pain [None]
  - Feeling abnormal [None]
  - Paraesthesia [None]
  - Palpitations [None]

NARRATIVE: CASE EVENT DATE: 20170309
